FAERS Safety Report 19074029 (Version 1)
Quarter: 2021Q1

REPORT INFORMATION
  Report Type: Spontaneous
  Country: JP (occurrence: JP)
  Receive Date: 20210330
  Receipt Date: 20210330
  Transmission Date: 20210420
  Serious: Yes (Other)
  Sender: FDA-Public Use
  Company Number: JP-SANOFI-AVENTIS-2013SA025230

PATIENT
  Age: 68 Year
  Sex: Male

DRUGS (1)
  1. TRIAMCINOLONE ACETONIDE. [Suspect]
     Active Substance: TRIAMCINOLONE ACETONIDE
     Indication: PYLORIC STENOSIS
     Dosage: LOCALLY INJECTED INTO THE ULCER, WHICH WAS COVERED WITH WHITE MOSS
     Route: 065

REACTIONS (3)
  - Immunosuppression [Unknown]
  - Injection site reaction [Unknown]
  - Cytomegalovirus mucocutaneous ulcer [Recovered/Resolved]
